FAERS Safety Report 6852082-5 (Version None)
Quarter: 2010Q3

REPORT INFORMATION
  Report Type: 
  Country: None (occurrence: None)
  Receive Date: 20100717
  Receipt Date: 20071107
  Transmission Date: 20110219
  Serious: No
  Sender: FDA-Public Use
  Company Number: US-PFIZER INC-2007094992

PATIENT
  Sex: Female
  Weight: 68.2 kg

DRUGS (6)
  1. CHANTIX [Suspect]
     Indication: SMOKING CESSATION THERAPY
     Dates: start: 20071029
  2. CALCIUM [Concomitant]
  3. VITAMINS [Concomitant]
  4. PAXIL [Concomitant]
  5. ATENOLOL [Concomitant]
  6. GLYBURIDE [Concomitant]

REACTIONS (3)
  - JOINT SWELLING [None]
  - OEDEMA PERIPHERAL [None]
  - PAIN [None]
